FAERS Safety Report 20889417 (Version 1)
Quarter: 2022Q2

REPORT INFORMATION
  Report Type: Spontaneous
  Country: CN (occurrence: None)
  Receive Date: 20220530
  Receipt Date: 20220530
  Transmission Date: 20220721
  Serious: Yes (Hospitalization)
  Sender: FDA-Public Use
  Company Number: CN-ROCHE-3105172

PATIENT
  Age: 58 Year
  Sex: Female
  Weight: 71 kg

DRUGS (4)
  1. XELODA [Suspect]
     Active Substance: CAPECITABINE
     Indication: Ovarian cancer
     Dosage: 1.0G IN THE MORNING AND 1.5G IN THE EVENING
     Route: 048
     Dates: start: 20220421, end: 20220504
  2. LOBAPLATIN [Suspect]
     Active Substance: LOBAPLATIN
     Indication: Ovarian cancer
     Route: 065
     Dates: start: 20220501, end: 20220501
  3. CATEQUENTINIB [Suspect]
     Active Substance: CATEQUENTINIB
     Indication: Ovarian cancer
     Route: 048
     Dates: start: 20220421, end: 20220504
  4. DEXTROSE [Concomitant]
     Active Substance: DEXTROSE
     Dosage: SOLVENT
     Dates: start: 20220501, end: 20220501

REACTIONS (2)
  - Myelosuppression [Recovering/Resolving]
  - Off label use [Unknown]

NARRATIVE: CASE EVENT DATE: 20220512
